FAERS Safety Report 12222256 (Version 1)
Quarter: 2016Q1

REPORT INFORMATION
  Report Type: Not Available
  Country: FR (occurrence: FR)
  Receive Date: 20160330
  Receipt Date: 20160330
  Transmission Date: 20160526
  Serious: Yes (Life-Threatening)
  Sender: FDA-Public Use
  Company Number: FR-MUNDIPHARMA DS AND PHARMACOVIGILANCE-GBR-2016-0034882

PATIENT
  Age: 72 Year
  Sex: Female

DRUGS (20)
  1. OXYCONTIN [Suspect]
     Active Substance: OXYCODONE HYDROCHLORIDE
     Indication: PAIN
     Dosage: 40 MG, DAILY
     Route: 048
     Dates: start: 20160122, end: 20160127
  2. OXYNORMORO COMPRIME ORODISPERSIBLE [Suspect]
     Active Substance: OXYCODONE
     Indication: PAIN
     Dosage: 5 MG MAX 6 TIMES DAILY IF NEEDED
     Route: 048
     Dates: start: 20160123, end: 20160127
  3. IPRATROPIUM BROMIDE. [Concomitant]
     Active Substance: IPRATROPIUM BROMIDE
  4. DIFFU K [Concomitant]
     Active Substance: POTASSIUM CHLORIDE
  5. SALBUTAMOL [Concomitant]
     Active Substance: ALBUTEROL
  6. TAHOR [Concomitant]
     Active Substance: ATORVASTATIN CALCIUM
  7. ISOPTINE [Concomitant]
     Active Substance: VERAPAMIL HYDROCHLORIDE
  8. IRBESARTAN. [Concomitant]
     Active Substance: IRBESARTAN
  9. LANTUS [Concomitant]
     Active Substance: INSULIN GLARGINE
  10. IKOREL [Concomitant]
     Active Substance: NICORANDIL
  11. CYMBALTA [Concomitant]
     Active Substance: DULOXETINE HYDROCHLORIDE
  12. DUPHALAC [Concomitant]
     Active Substance: LACTULOSE
  13. NOVORAPID [Concomitant]
     Active Substance: INSULIN ASPART
  14. LASILIX                            /00032601/ [Concomitant]
     Active Substance: FUROSEMIDE
  15. FRAGMINE [Concomitant]
     Active Substance: DALTEPARIN SODIUM
  16. PANTOPRAZOLE [Concomitant]
     Active Substance: PANTOPRAZOLE SODIUM
  17. CALCIDOSE VITAMINE D [Concomitant]
     Active Substance: CALCIUM\CHOLECALCIFEROL
  18. SOLUPRED                           /00016201/ [Concomitant]
     Active Substance: PREDNISOLONE
  19. BUDESONIDE. [Concomitant]
     Active Substance: BUDESONIDE
  20. KARDEGIC [Concomitant]
     Active Substance: ASPIRIN LYSINE

REACTIONS (6)
  - Acute respiratory failure [Recovered/Resolved]
  - Pruritus generalised [Recovered/Resolved]
  - Somnolence [Recovered/Resolved]
  - Eyelid oedema [Recovered/Resolved]
  - Bronchospasm [Recovered/Resolved]
  - Miosis [Recovered/Resolved]

NARRATIVE: CASE EVENT DATE: 20160127
